FAERS Safety Report 13460174 (Version 3)
Quarter: 2019Q4

REPORT INFORMATION
  Report Type: Spontaneous
  Country: FR (occurrence: FR)
  Receive Date: 20170420
  Receipt Date: 20191017
  Transmission Date: 20200122
  Serious: Yes (Hospitalization, Other)
  Sender: FDA-Public Use
  Company Number: FR-JNJFOC-20170410222

PATIENT
  Age: 83 Year
  Sex: Male

DRUGS (11)
  1. NORADRENALIN [Concomitant]
     Active Substance: NOREPINEPHRINE\NOREPINEPHRINE BITARTRATE
     Route: 065
  2. ANGIOX [Interacting]
     Active Substance: BIVALIRUDIN
     Route: 041
     Dates: start: 20170324
  3. ISOSORBIDE DINITRATE. [Concomitant]
     Active Substance: ISOSORBIDE DINITRATE
     Route: 065
  4. REOPRO [Suspect]
     Active Substance: ABCIXIMAB
     Indication: ANGIOCARDIOGRAM
     Dosage: ONE SINGLE BOLUS IN ONE DAY
     Route: 042
     Dates: start: 20170324, end: 20170324
  5. SERTRALINE [Interacting]
     Active Substance: SERTRALINE HYDROCHLORIDE
     Indication: DEPRESSION
     Route: 048
     Dates: end: 20170323
  6. KARDEGIC [Interacting]
     Active Substance: ASPIRIN DL-LYSINE
     Indication: PRODUCT USED FOR UNKNOWN INDICATION
     Route: 065
     Dates: end: 20170331
  7. ISOPTINE [Concomitant]
     Active Substance: VERAPAMIL HYDROCHLORIDE
     Route: 065
  8. KRENOSIN [Concomitant]
     Active Substance: ADENOSINE
     Indication: PRODUCT USED FOR UNKNOWN INDICATION
     Route: 065
  9. ANGIOX [Interacting]
     Active Substance: BIVALIRUDIN
     Indication: ACUTE CORONARY SYNDROME
     Dosage: 250 MG (STRENGTH)  ONE DAY
     Route: 040
     Dates: start: 20170324, end: 20170324
  10. ROGART [Concomitant]
     Indication: PRODUCT USED FOR UNKNOWN INDICATION
  11. NORADRAN [Concomitant]
     Indication: PRODUCT USED FOR UNKNOWN INDICATION
     Route: 065

REACTIONS (5)
  - Drug interaction [Unknown]
  - Anaemia [Recovered/Resolved]
  - Gingival bleeding [Unknown]
  - Mallory-Weiss syndrome [Unknown]
  - Oesophageal ulcer haemorrhage [Recovered/Resolved]

NARRATIVE: CASE EVENT DATE: 20170324
